FAERS Safety Report 6139628-X (Version None)
Quarter: 2009Q1

REPORT INFORMATION
  Report Type: 
  Country: None (occurrence: None)
  Receive Date: 20090331
  Receipt Date: 20090331
  Transmission Date: 20090719
  Serious: No
  Sender: FDA-Public Use
  Company Number: None

PATIENT
  Age: 20 Year
  Sex: Female
  Weight: 59 kg

DRUGS (5)
  1. ZOFRAN [Suspect]
     Indication: NAUSEA
     Dosage: 4 MG Q6 PRN IV X1
     Route: 042
     Dates: start: 20090226
  2. RHINOCORT [Concomitant]
  3. ADVAIR HFA [Concomitant]
  4. ALBUTEROL [Concomitant]
  5. YASMIN [Concomitant]

REACTIONS (3)
  - RASH ERYTHEMATOUS [None]
  - RASH PAPULAR [None]
  - RASH PRURITIC [None]
